FAERS Safety Report 12946163 (Version 1)
Quarter: 2016Q4

REPORT INFORMATION
  Report Type: Other
  Country: US (occurrence: US)
  Receive Date: 20161116
  Receipt Date: 20161116
  Transmission Date: 20170207
  Serious: Yes (Other)
  Sender: FDA-Public Use
  Company Number: US-ACTELION-A-CH2016-145232

PATIENT
  Age: 2 Year
  Sex: Female

DRUGS (6)
  1. NITRIC OXIDE. [Concomitant]
     Active Substance: NITRIC OXIDE
     Indication: PULMONARY HYPERTENSION
  2. BOSENTAN. [Suspect]
     Active Substance: BOSENTAN
     Indication: PULMONARY HYPERTENSION
     Route: 048
  3. DOPAMINE [Concomitant]
     Active Substance: DOPAMINE\DOPAMINE HYDROCHLORIDE
     Indication: PULMONARY HYPERTENSION
  4. DOBUTAMINE [Concomitant]
     Active Substance: DOBUTAMINE\DOBUTAMINE HYDROCHLORIDE
     Indication: PULMONARY HYPERTENSION
  5. MILRINONE [Concomitant]
     Active Substance: MILRINONE
     Indication: PULMONARY HYPERTENSION
  6. SILDENAFIL. [Concomitant]
     Active Substance: SILDENAFIL
     Indication: PULMONARY HYPERTENSION

REACTIONS (7)
  - Hypoxic-ischaemic encephalopathy [Unknown]
  - Speech disorder [Unknown]
  - Walking aid user [Unknown]
  - Speech rehabilitation [Unknown]
  - Cognitive disorder [Not Recovered/Not Resolved]
  - Gross motor delay [Not Recovered/Not Resolved]
  - Hernia diaphragmatic repair [Recovered/Resolved]
